FAERS Safety Report 15430895 (Version 1)
Quarter: 2018Q3

REPORT INFORMATION
  Report Type: Spontaneous
  Country: US (occurrence: US)
  Receive Date: 20180926
  Receipt Date: 20180926
  Transmission Date: 20181010
  Serious: No
  Sender: FDA-Public Use
  Company Number: US-INDIVIOR LIMITED-INDV-110871-2018

PATIENT
  Sex: Male

DRUGS (1)
  1. SUBOXONE [Suspect]
     Active Substance: BUPRENORPHINE HYDROCHLORIDE\NALOXONE HYDROCHLORIDE
     Indication: DRUG DEPENDENCE
     Dosage: 1 AND HALF OF AN 8 MG FILM PER DAY
     Route: 065

REACTIONS (5)
  - Feeling abnormal [Unknown]
  - Wrong technique in product usage process [Recovered/Resolved]
  - Therapy cessation [Recovered/Resolved]
  - Fear [Unknown]
  - Adverse event [Unknown]
